FAERS Safety Report 24245022 (Version 3)
Quarter: 2024Q3

REPORT INFORMATION
  Report Type: Spontaneous
  Country: US (occurrence: US)
  Receive Date: 20240823
  Receipt Date: 20240912
  Transmission Date: 20241017
  Serious: Yes (Life-Threatening)
  Sender: CSL BEHRING
  Company Number: US-BEH-2024177150

PATIENT
  Age: 57 Year
  Sex: Female
  Weight: 70.295 kg

DRUGS (2)
  1. HUMATE-P [Suspect]
     Active Substance: HUMAN COAGULATION FACTOR VIII/VON WILLEBRAND FACTOR COMPLEX
     Indication: Von Willebrand^s disease
     Dosage: 5680 IU
     Route: 042
  2. BENADRYL [Concomitant]
     Active Substance: DIPHENHYDRAMINE HYDROCHLORIDE

REACTIONS (15)
  - Anaphylactic shock [Unknown]
  - Pulmonary congestion [Unknown]
  - Lower respiratory tract infection [Unknown]
  - Feeling abnormal [Unknown]
  - Groin pain [Unknown]
  - Burning sensation [Unknown]
  - Pain in extremity [Unknown]
  - Abdominal pain upper [Unknown]
  - Paraesthesia [Unknown]
  - Headache [Unknown]
  - Swelling face [Unknown]
  - Eye swelling [Unknown]
  - Blood pressure decreased [Unknown]
  - Chest discomfort [Unknown]
  - Sensation of foreign body [Unknown]

NARRATIVE: CASE EVENT DATE: 20240730
